FAERS Safety Report 9915109 (Version 2)
Quarter: 2014Q1

REPORT INFORMATION
  Report Type: Report from Study
  Country: US (occurrence: US)
  Receive Date: 20140220
  Receipt Date: 20140227
  Transmission Date: 20141002
  Serious: Yes (Other)
  Sender: FDA-Public Use
  Company Number: US-ABBVIE-14P-163-1201584-00

PATIENT
  Sex: Female
  Weight: 77.63 kg

DRUGS (4)
  1. HUMIRA [Suspect]
     Indication: PSORIASIS
     Dates: start: 2005
  2. HUMIRA [Suspect]
     Indication: PSORIATIC ARTHROPATHY
  3. SYNTHROID [Concomitant]
     Indication: PRODUCT USED FOR UNKNOWN INDICATION
  4. PANTOPRAZOLE [Concomitant]
     Indication: PRODUCT USED FOR UNKNOWN INDICATION

REACTIONS (10)
  - Deafness [Not Recovered/Not Resolved]
  - Breast mass [Recovered/Resolved]
  - Breast cancer [Recovered/Resolved]
  - Cough [Not Recovered/Not Resolved]
  - Thyroid function test abnormal [Recovered/Resolved]
  - Hypertension [Recovered/Resolved]
  - Upper respiratory tract infection [Recovered/Resolved]
  - Local swelling [Not Recovered/Not Resolved]
  - Thyroid function test abnormal [Unknown]
  - Bronchitis [Recovered/Resolved]
